FAERS Safety Report 15103857 (Version 4)
Quarter: 2019Q2

REPORT INFORMATION
  Report Type: Spontaneous
  Country: US (occurrence: US)
  Receive Date: 20180703
  Receipt Date: 20190628
  Transmission Date: 20190711
  Serious: Yes (Hospitalization, Other)
  Sender: FDA-Public Use
  Company Number: US-DSJP-DSU-2017-107476

PATIENT

DRUGS (3)
  1. BENICAR [Suspect]
     Active Substance: OLMESARTAN MEDOXOMIL
     Indication: PRODUCT USED FOR UNKNOWN INDICATION
     Dosage: 20 MG, QD
     Route: 048
     Dates: start: 20080101
  2. BENICAR HCT [Suspect]
     Active Substance: HYDROCHLOROTHIAZIDE\OLMESARTAN MEDOXOMIL
     Indication: PRODUCT USED FOR UNKNOWN INDICATION
     Dosage: 20/12.5 MG, UNK
     Dates: start: 20080101
  3. BENICAR [Suspect]
     Active Substance: OLMESARTAN MEDOXOMIL
     Dosage: 40 MG, QD
     Route: 048
     Dates: start: 20080101

REACTIONS (10)
  - Impaired gastric emptying [Unknown]
  - Irritable bowel syndrome [Not Recovered/Not Resolved]
  - Gastritis erosive [Unknown]
  - Hiatus hernia [Unknown]
  - Haemorrhoids [Not Recovered/Not Resolved]
  - Hypotension [Unknown]
  - Gastrooesophageal reflux disease [Not Recovered/Not Resolved]
  - Syncope [Unknown]
  - Acute kidney injury [Not Recovered/Not Resolved]
  - Sprue-like enteropathy [Recovering/Resolving]

NARRATIVE: CASE EVENT DATE: 20080901
